FAERS Safety Report 20596524 (Version 1)
Quarter: 2022Q1

REPORT INFORMATION
  Report Type: Other
  Country: CA (occurrence: None)
  Receive Date: 20220315
  Receipt Date: 20220315
  Transmission Date: 20220424
  Serious: No
  Sender: FDA-Public Use
  Company Number: CA-ROCHE-2796597

PATIENT
  Age: 47 Year
  Sex: Female

DRUGS (2)
  1. OCREVUS [Suspect]
     Active Substance: OCRELIZUMAB
     Indication: Relapsing-remitting multiple sclerosis
     Dosage: THEN 600 MG EVERY 6 MONTH
     Route: 042
     Dates: start: 20191115
  2. DOSTINEX [Suspect]
     Active Substance: CABERGOLINE
     Indication: Product used for unknown indication
     Route: 065

REACTIONS (3)
  - Hypotension [Not Recovered/Not Resolved]
  - COVID-19 [Recovered/Resolved]
  - Endocrine disorder [Unknown]

NARRATIVE: CASE EVENT DATE: 20220209
